FAERS Safety Report 13931076 (Version 4)
Quarter: 2017Q4

REPORT INFORMATION
  Report Type: Report from Study
  Country: None (occurrence: UY)
  Receive Date: 20170902
  Receipt Date: 20171003
  Transmission Date: 20180320
  Serious: Yes (Other)
  Sender: FDA-Public Use
  Company Number: UY-ABBVIE-17K-168-2091135-00

PATIENT
  Age: 49 Year
  Sex: Female

DRUGS (4)
  1. HUMIRA [Suspect]
     Active Substance: ADALIMUMAB
     Indication: RHEUMATOID ARTHRITIS
     Route: 058
     Dates: start: 20130409
  2. HUMIRA [Suspect]
     Active Substance: ADALIMUMAB
     Route: 058
     Dates: start: 20170918
  3. RAMIPRIL. [Concomitant]
     Active Substance: RAMIPRIL
     Indication: HYPERTENSION
     Route: 048
  4. MELOXICAM. [Concomitant]
     Active Substance: MELOXICAM
     Indication: PAIN

REACTIONS (10)
  - Hypertension [Recovered/Resolved]
  - Renal pain [Recovered/Resolved]
  - Headache [Recovered/Resolved]
  - Red blood cell sedimentation rate increased [Recovered/Resolved]
  - Spinal osteoarthritis [Unknown]
  - C-reactive protein increased [Not Recovered/Not Resolved]
  - Intervertebral disc degeneration [Unknown]
  - Intestinal haemorrhage [Recovered/Resolved]
  - Intervertebral disc protrusion [Unknown]
  - Decreased appetite [Not Recovered/Not Resolved]

NARRATIVE: CASE EVENT DATE: 201707
